FAERS Safety Report 19402560 (Version 1)
Quarter: 2021Q2

REPORT INFORMATION
  Report Type: Spontaneous
  Country: FR (occurrence: FR)
  Receive Date: 20210610
  Receipt Date: 20210610
  Transmission Date: 20210717
  Serious: Yes (Other)
  Sender: FDA-Public Use
  Company Number: NVSC2021FR123862

PATIENT
  Age: 81 Year
  Sex: Male

DRUGS (1)
  1. DOXYCYCLINE SANDOZ [Suspect]
     Active Substance: DOXYCYCLINE
     Indication: PRODUCT USED FOR UNKNOWN INDICATION
     Dosage: 100 MG, QD
     Route: 048
     Dates: start: 20210310, end: 20210314

REACTIONS (3)
  - Hyperglycaemia [Recovered/Resolved]
  - Hallucinations, mixed [Recovered/Resolved]
  - Gastrointestinal disorder [Recovered/Resolved]
